FAERS Safety Report 10685967 (Version 1)
Quarter: 2014Q4

REPORT INFORMATION
  Report Type: Spontaneous
  Country: HU (occurrence: HU)
  Receive Date: 20141231
  Receipt Date: 20141231
  Transmission Date: 20150529
  Serious: Yes (Death)
  Sender: FDA-Public Use
  Company Number: HU-B.I. PHARMACEUTICALS,INC./RIDGEFIELD-2014-BI-62816YA

PATIENT
  Age: 78 Year
  Sex: Male
  Weight: 80 kg

DRUGS (14)
  1. ZOCOR [Suspect]
     Active Substance: SIMVASTATIN
     Indication: HYPERLIPIDAEMIA
     Dosage: 40 UNK
     Route: 048
     Dates: start: 20130925
  2. BISOPROLOL [Suspect]
     Active Substance: BISOPROLOL
     Indication: HYPERTENSION
     Dosage: 5 UNK
     Route: 048
     Dates: start: 20130321
  3. YAROCEN [Concomitant]
     Indication: PRODUCT USED FOR UNKNOWN INDICATION
     Route: 065
     Dates: start: 20130925
  4. TAMSULOSINA [Suspect]
     Active Substance: TAMSULOSIN HYDROCHLORIDE
     Indication: HYPERTENSION
     Dosage: 0.4 MG
     Route: 048
     Dates: start: 20111115
  5. MILURIT [Suspect]
     Active Substance: ALLOPURINOL
     Indication: PRODUCT USED FOR UNKNOWN INDICATION
     Dosage: 300 UNK
     Route: 048
     Dates: start: 20130322
  6. NAFTILONG [Suspect]
     Active Substance: NAFRONYL OXALATE
     Indication: JOINT STIFFNESS
     Dosage: 200 UNK
     Route: 048
     Dates: start: 20130321
  7. AZILECT [Concomitant]
     Active Substance: RASAGILINE MESYLATE
     Indication: PRODUCT USED FOR UNKNOWN INDICATION
     Route: 065
     Dates: start: 20130925
  8. ROPINIROL TEVA [Concomitant]
     Active Substance: ROPINIROLE HYDROCHLORIDE
     Indication: PRODUCT USED FOR UNKNOWN INDICATION
     Route: 065
     Dates: start: 20130925
  9. CO- PERINEVA [Suspect]
     Active Substance: INDAPAMIDE\PERINDOPRIL ERBUMINE
     Indication: HYPERTENSION
     Dosage: 4 UNK
     Route: 048
     Dates: start: 20130321
  10. ASA [Suspect]
     Active Substance: ASPIRIN
     Indication: JOINT STIFFNESS
     Dosage: 100 UNK
     Route: 048
     Dates: start: 19960828
  11. PENTOXYL [Suspect]
     Active Substance: PENTOXIFYLLINE
     Indication: JOINT STIFFNESS
     Dosage: 1200 UNK
     Route: 048
     Dates: start: 19960828
  12. FUROSEMID [Suspect]
     Active Substance: FUROSEMIDE
     Indication: CHRONIC KIDNEY DISEASE
     Dosage: 40 UNK
     Route: 048
     Dates: start: 20130322
  13. MALTOFER FOL [Suspect]
     Active Substance: FOLIC ACID\IRON POLYMALTOSE
     Indication: SUPPLEMENTATION THERAPY
     Dosage: 200 UNK
     Route: 048
     Dates: start: 20131009
  14. PANTOPRAZOLE [Suspect]
     Active Substance: PANTOPRAZOLE SODIUM
     Indication: PROPHYLAXIS AGAINST GASTROINTESTINAL ULCER
     Dosage: 40 UNK
     Route: 048
     Dates: start: 20140321

REACTIONS (1)
  - Cardiac arrest [Fatal]

NARRATIVE: CASE EVENT DATE: 20141208
